FAERS Safety Report 21226000 (Version 2)
Quarter: 2022Q3

REPORT INFORMATION
  Report Type: Report from Study
  Country: CO (occurrence: CO)
  Receive Date: 20220818
  Receipt Date: 20220819
  Transmission Date: 20221026
  Serious: Yes (Other)
  Sender: FDA-Public Use
  Company Number: CO-BAYER-2022A114799

PATIENT
  Age: 56 Year
  Sex: Male

DRUGS (9)
  1. EYLEA [Suspect]
     Active Substance: AFLIBERCEPT
     Indication: Diabetic retinal oedema
     Dosage: UNK, BOTH EYES, SOLUTION FOR INJECTION, STRENGTH: 40MG/ML
     Dates: start: 20210108, end: 20210108
  2. EYLEA [Suspect]
     Active Substance: AFLIBERCEPT
     Dosage: UNK, BOTH EYES, SOLUTION FOR INJECTION, STRENGTH: 40MG/ML
     Dates: start: 20210207, end: 20210207
  3. EYLEA [Suspect]
     Active Substance: AFLIBERCEPT
     Dosage: UNK, BOTH EYES, SOLUTION FOR INJECTION, STRENGTH: 40MG/ML
     Dates: start: 20210305, end: 20210305
  4. EYLEA [Suspect]
     Active Substance: AFLIBERCEPT
     Dosage: UNK, BOTH EYES, SOLUTION FOR INJECTION, STRENGTH: 40MG/ML
     Dates: start: 20210406, end: 20210406
  5. EYLEA [Suspect]
     Active Substance: AFLIBERCEPT
     Dosage: UNK, BOTH EYES, SOLUTION FOR INJECTION, STRENGTH: 40MG/ML
     Dates: start: 20210510, end: 20210510
  6. EYLEA [Suspect]
     Active Substance: AFLIBERCEPT
     Dosage: UNK, BOTH EYES, SOLUTION FOR INJECTION, STRENGTH: 40MG/ML
     Dates: start: 20210708, end: 20210708
  7. EYLEA [Suspect]
     Active Substance: AFLIBERCEPT
     Dosage: UNK, BOTH EYES, SOLUTION FOR INJECTION, STRENGTH: 40MG/ML
     Dates: start: 20210929, end: 20210929
  8. EYLEA [Suspect]
     Active Substance: AFLIBERCEPT
     Dosage: UNK, LEFT EYE, SOLUTION FOR INJECTION,  STRENGTH: 40MG/ML
     Dates: start: 20220308, end: 20220308
  9. METFORMIN [Concomitant]
     Active Substance: METFORMIN HYDROCHLORIDE
     Indication: Diabetes mellitus

REACTIONS (3)
  - Eye haemorrhage [Unknown]
  - Inappropriate schedule of product administration [Unknown]
  - Visual impairment [Unknown]

NARRATIVE: CASE EVENT DATE: 20220501
